FAERS Safety Report 8230651-8 (Version None)
Quarter: 2012Q1

REPORT INFORMATION
  Report Type: 
  Country: None (occurrence: None)
  Receive Date: 20120323
  Receipt Date: 20120315
  Transmission Date: 20120608
  Serious: Yes (Hospitalization, Other)
  Sender: FDA-Public Use
  Company Number: US-ASTELLAS-2011US006106

PATIENT
  Sex: Female
  Weight: 63 kg

DRUGS (3)
  1. TARCEVA [Suspect]
     Indication: LUNG CARCINOMA CELL TYPE UNSPECIFIED RECURRENT
     Dosage: 150 MG, UID/QD
     Route: 048
     Dates: start: 20070701
  2. TARCEVA [Suspect]
     Dosage: 150 MG, QOD
     Route: 048
  3. TARCEVA [Suspect]
     Dosage: 100 MG, UNKNOWN/D
     Route: 048
     Dates: end: 20080218

REACTIONS (5)
  - NEUROPATHY PERIPHERAL [None]
  - RASH GENERALISED [None]
  - DRUG INEFFECTIVE [None]
  - LUNG CARCINOMA CELL TYPE UNSPECIFIED RECURRENT [None]
  - MYOPATHY [None]
